FAERS Safety Report 12979347 (Version 6)
Quarter: 2017Q1

REPORT INFORMATION
  Report Type: Spontaneous
  Country: US (occurrence: US)
  Receive Date: 20161128
  Receipt Date: 20170203
  Transmission Date: 20170428
  Serious: Yes (Hospitalization, Other)
  Sender: FDA-Public Use
  Company Number: US-GLAXOSMITHKLINE-US2016172965

PATIENT
  Age: 61 Year
  Sex: Female

DRUGS (16)
  1. CLONIDINE. [Concomitant]
     Active Substance: CLONIDINE
  2. CLOPIDOGREL [Concomitant]
     Active Substance: CLOPIDOGREL BISULFATE
  3. FUROSEMIDE. [Concomitant]
     Active Substance: FUROSEMIDE
  4. VERAPAMIL [Concomitant]
     Active Substance: VERAPAMIL HYDROCHLORIDE
  5. PRAVASTATIN. [Concomitant]
     Active Substance: PRAVASTATIN
  6. OLMESARTAN [Concomitant]
     Active Substance: OLMESARTAN
  7. AMOXICILLIN. [Suspect]
     Active Substance: AMOXICILLIN
     Indication: PRODUCT USED FOR UNKNOWN INDICATION
  8. CARDIZEM [Suspect]
     Active Substance: DILTIAZEM HYDROCHLORIDE
     Indication: PRODUCT USED FOR UNKNOWN INDICATION
  9. ALBUTEROL. [Concomitant]
     Active Substance: ALBUTEROL
  10. NUCALA [Suspect]
     Active Substance: MEPOLIZUMAB
     Indication: ASTHMA
     Dosage: 100 MG, Z
     Route: 058
     Dates: start: 20161121, end: 20161121
  11. SINGULAIR [Concomitant]
     Active Substance: MONTELUKAST SODIUM
  12. QVAR [Concomitant]
     Active Substance: BECLOMETHASONE DIPROPIONATE
  13. ASPIRIN. [Suspect]
     Active Substance: ASPIRIN
     Indication: PRODUCT USED FOR UNKNOWN INDICATION
  14. FLONASE [Concomitant]
     Active Substance: FLUTICASONE PROPIONATE
  15. DOXYCYCLINE. [Suspect]
     Active Substance: DOXYCYCLINE
     Indication: PRODUCT USED FOR UNKNOWN INDICATION
  16. CIPROFLOXACIN. [Suspect]
     Active Substance: CIPROFLOXACIN
     Indication: PRODUCT USED FOR UNKNOWN INDICATION

REACTIONS (20)
  - Pain in extremity [Unknown]
  - Emergency care [Unknown]
  - Lung disorder [Unknown]
  - Asthenia [Unknown]
  - Fatigue [Unknown]
  - Drooling [Unknown]
  - Bronchospasm [Unknown]
  - Vocal cord disorder [Unknown]
  - Hypersensitivity [Unknown]
  - Throat tightness [Unknown]
  - Wheezing [Unknown]
  - Pain in jaw [Unknown]
  - Dyspnoea [Unknown]
  - Lip swelling [Unknown]
  - Acute respiratory failure [Recovering/Resolving]
  - Cough [Unknown]
  - Myalgia [Unknown]
  - Dysphonia [Unknown]
  - Asthma [Unknown]
  - Condition aggravated [Unknown]

NARRATIVE: CASE EVENT DATE: 201611
